FAERS Safety Report 8906055 (Version 1)
Quarter: 2012Q4

REPORT INFORMATION
  Report Type: Spontaneous
  Country: US (occurrence: None)
  Receive Date: 20121106
  Receipt Date: 20121106
  Transmission Date: 20130627
  Serious: Yes (Hospitalization)
  Sender: FDA-Public Use
  Company Number: 2011-4360

PATIENT
  Age: 10 Year
  Sex: Male

DRUGS (2)
  1. INCRELEX [Suspect]
     Indication: DRUG USE FOR UNKNOWN INDICATION
     Dates: start: 2010
  2. DEKAPOTE (VALPROATE SEMISODIUM) [Concomitant]

REACTIONS (2)
  - Convulsion [None]
  - ACTH stimulation test abnormal [None]
